FAERS Safety Report 25153194 (Version 2)
Quarter: 2025Q2

REPORT INFORMATION
  Report Type: Spontaneous
  Country: US (occurrence: US)
  Receive Date: 20250403
  Receipt Date: 20250521
  Transmission Date: 20250716
  Serious: Yes (Hospitalization)
  Sender: Phathom Pharmaceuticals
  Company Number: US-PHATHOM PHARMACEUTICALS INC.-2025PHT00680

PATIENT
  Age: 55 Year
  Sex: Female

DRUGS (18)
  1. VOQUEZNA [Suspect]
     Active Substance: VONOPRAZAN FUMARATE
     Indication: Gastrooesophageal reflux disease
     Dosage: 10 MG, 1X/DAY
     Route: 048
     Dates: start: 20241204, end: 20250330
  2. HYDRALAZIDE [Concomitant]
  3. OXYCODONE [Concomitant]
     Active Substance: OXYCODONE
  4. GABAPENTIN [Concomitant]
     Active Substance: GABAPENTIN
  5. CARVEDILOL [Concomitant]
     Active Substance: CARVEDILOL
  6. REGLAN [Concomitant]
     Active Substance: METOCLOPRAMIDE HYDROCHLORIDE
  7. LAMOTRIGINE [Concomitant]
     Active Substance: LAMOTRIGINE
  8. ZOLOFT [Concomitant]
     Active Substance: SERTRALINE HYDROCHLORIDE
  9. BUPROPION [Concomitant]
     Active Substance: BUPROPION
     Indication: Ex-tobacco user
  10. LISINOPRIL [Concomitant]
     Active Substance: LISINOPRIL
  11. FAMOTIDINE [Concomitant]
     Active Substance: FAMOTIDINE
  12. ATORVASTATIN [Concomitant]
     Active Substance: ATORVASTATIN
  13. CLOPIDOGREL [Concomitant]
     Active Substance: CLOPIDOGREL BISULFATE
  14. POTASSIUM CHLORIDE [Concomitant]
     Active Substance: POTASSIUM CHLORIDE
  15. BUSPIRONE [Concomitant]
     Active Substance: BUSPIRONE HYDROCHLORIDE
  16. REXULTI [Concomitant]
     Active Substance: BREXPIPRAZOLE
  17. BUPROPION HYDROCHLORIDE [Concomitant]
     Active Substance: BUPROPION HYDROCHLORIDE
  18. SUCRALFATE [Concomitant]
     Active Substance: SUCRALFATE

REACTIONS (1)
  - Respiratory failure [Unknown]

NARRATIVE: CASE EVENT DATE: 20250101
